FAERS Safety Report 8508981-1 (Version None)
Quarter: 2012Q3

REPORT INFORMATION
  Report Type: 
  Country: None (occurrence: None)
  Receive Date: 20120703
  Receipt Date: 20120618
  Transmission Date: 20120928
  Serious: Yes (Hospitalization, Other)
  Sender: FDA-Public Use
  Company Number: 20120409

PATIENT
  Sex: Female

DRUGS (1)
  1. METHYLENE BLUE INJECTION, USP [Suspect]
     Indication: PARATHYROIDECTOMY
     Dosage: 5 MG/KG INTRAVENOUS
     Route: 042

REACTIONS (4)
  - ERYTHEMA [None]
  - PHOTOSENSITIVITY REACTION [None]
  - DRUG INTERACTION [None]
  - ONYCHOLYSIS [None]
